FAERS Safety Report 7407994-0 (Version None)
Quarter: 2011Q2

REPORT INFORMATION
  Report Type: 
  Country: None (occurrence: None)
  Receive Date: 20110412
  Receipt Date: 20110408
  Transmission Date: 20111010
  Serious: No
  Sender: FDA-Public Use
  Company Number: US-PFIZER INC-2011078360

PATIENT
  Sex: Male
  Weight: 95.692 kg

DRUGS (4)
  1. METOPROLOL [Concomitant]
     Dosage: UNK
  2. COVERA-HS [Suspect]
     Indication: HYPERTENSION
     Dosage: 180 MG, 2X/DAY
     Route: 048
     Dates: start: 20110401, end: 20110407
  3. CRESTOR [Concomitant]
     Dosage: UNK
  4. POTASSIUM [Concomitant]
     Dosage: UNK

REACTIONS (1)
  - BLOOD PRESSURE INCREASED [None]
